FAERS Safety Report 18810408 (Version 2)
Quarter: 2021Q1

REPORT INFORMATION
  Report Type: Spontaneous
  Country: JP (occurrence: JP)
  Receive Date: 20210129
  Receipt Date: 20210201
  Transmission Date: 20210419
  Serious: Yes (Other)
  Sender: FDA-Public Use
  Company Number: JP-ASTRAZENECA-2020SF56044

PATIENT
  Age: 66 Year
  Sex: Female

DRUGS (25)
  1. FASENRA [Suspect]
     Active Substance: BENRALIZUMAB
     Indication: ASTHMA
     Dosage: FIRST DOSE: 07?JUN?2019, SECOND DOSE:05?JUL?2019, THIRD DOSE: 02?AUG?2019?30 MG EVERY FOUR WEEKS
     Route: 058
     Dates: start: 20190607, end: 20190802
  2. MUCODYNE [Concomitant]
     Active Substance: CARBOCYSTEINE
     Dosage: BEFORE BEDTIME
     Route: 048
  3. KIPRES [Concomitant]
     Active Substance: MONTELUKAST SODIUM
     Dosage: BEFORE BEDTIME
     Route: 048
  4. IPD [Concomitant]
     Active Substance: SUPLATAST TOSILATE
     Dosage: MORNING AND BEFORE BEDTIME
     Route: 048
  5. MUCOSTA [Concomitant]
     Active Substance: REBAMIPIDE
     Dosage: AFTER EVERY MEAL
     Route: 048
  6. GASMOTIN [Concomitant]
     Active Substance: MOSAPRIDE CITRATE
     Dosage: AFTER EVERY MEAL
     Route: 048
  7. THEO?DUR [Concomitant]
     Active Substance: THEOPHYLLINE ANHYDROUS
     Dosage: AFTER BREAKFAST AND LUNCH
     Route: 048
  8. MUCOSOLVAN L [Concomitant]
     Active Substance: AMBROXOL HYDROCHLORIDE
     Dosage: BEFORE BEDTIME
     Route: 048
  9. PROTECADIN [Concomitant]
     Active Substance: LAFUTIDINE
     Dosage: MORNING, NOON, AND BEFORE BEDTIME
     Route: 048
  10. WYPAX [Concomitant]
     Active Substance: LORAZEPAM
     Dosage: MORNING AND BEFORE BEDTIME
     Route: 048
  11. MEROPEN [Concomitant]
     Active Substance: MEROPENEM
  12. FASENRA [Suspect]
     Active Substance: BENRALIZUMAB
     Indication: ASTHMA
     Dosage: FOURTH DOSE: 30?SEP?2019, FIFTH DOSE: 26?NOV?2019, SIXTH DOSE: 21?JAN?2020, SEVENTH DOSE: 17?MAR?...
     Route: 058
     Dates: start: 20190930, end: 20200710
  13. RINDERON [Concomitant]
  14. MUCODYNE [Concomitant]
     Active Substance: CARBOCYSTEINE
     Dosage: AFTER BREAKFAST AND LUNCH
     Route: 048
  15. SPIROPENT [Concomitant]
     Active Substance: CLENBUTEROL HYDROCHLORIDE
     Dosage: AFTER BREAKFAST AND LUNCH
     Route: 048
  16. SULTANOL [Concomitant]
     Active Substance: ALBUTEROL SULFATE
     Dosage: AS REQUIRED WHEN BREATHING WAS DIFFICULT. 1?2 PUFFS UP TO 3?4 TIMES DAILY
     Route: 055
  17. FLUTIFORM [Concomitant]
     Active Substance: FLUTICASONE PROPIONATE\FORMOTEROL FUMARATE
     Route: 055
  18. CELESTAMINE [Concomitant]
     Active Substance: BETAMETHASONE\DEXCHLORPHENIRAMINE MALEATE
     Dosage: BEFORE BEDTIME
     Route: 048
  19. GANATON [Concomitant]
     Active Substance: ITOPRIDE
     Dosage: AFTER EVERY MEAL
     Route: 048
  20. PREDNISOLONE. [Concomitant]
     Active Substance: PREDNISOLONE
     Dosage: BEFORE BEDTIME
     Route: 048
  21. THEO?DUR [Concomitant]
     Active Substance: THEOPHYLLINE ANHYDROUS
     Dosage: BEFORE BEDTIME
     Route: 048
  22. BILANOA [Concomitant]
     Active Substance: BILASTINE
     Dosage: BEFORE BEDTIME
     Route: 048
  23. PREDNISOLONE. [Concomitant]
     Active Substance: PREDNISOLONE
     Dosage: AS REQUIRED FOR ATTACKS. 1?2 TIMES DAILY20.0MG UNKNOWN
     Route: 048
  24. FASENRA [Suspect]
     Active Substance: BENRALIZUMAB
     Indication: ASTHMA
     Dosage: TENTH DOSE: 02?NOV?2020, ELEVENTH DOSE: 28?DEC?2020
     Route: 058
     Dates: start: 20201102
  25. ALOSENN [Concomitant]
     Dosage: BEFORE BEDTIME
     Route: 048

REACTIONS (3)
  - Carcinoembryonic antigen increased [Unknown]
  - Weight decreased [Recovering/Resolving]
  - Decreased appetite [Recovering/Resolving]

NARRATIVE: CASE EVENT DATE: 2020
